FAERS Safety Report 4384956-1 (Version None)
Quarter: 2004Q2

REPORT INFORMATION
  Report Type: 
  Country: None (occurrence: None)
  Receive Date: 20040625
  Receipt Date: 20040614
  Transmission Date: 20050107
  Serious: Yes (Other)
  Sender: FDA-Public Use
  Company Number: PHEH2004US06563

PATIENT
  Sex: Female

DRUGS (1)
  1. FEMARA [Suspect]

REACTIONS (2)
  - NEUROPATHY [None]
  - PARAESTHESIA [None]
